FAERS Safety Report 8792584 (Version 3)
Quarter: 2012Q4

REPORT INFORMATION
  Report Type: 
  Country: US (occurrence: US)
  Receive Date: 20120918
  Receipt Date: 20121009
  Transmission Date: 20130627
  Serious: Yes (Death, Other)
  Sender: FDA-Public Use
  Company Number: US-BAXTER-2012BAX017034

PATIENT
  Sex: Female

DRUGS (1)
  1. DIANEAL PD2 [Suspect]
     Indication: PERITONEAL DIALYSIS
     Route: 033
     Dates: end: 20120824

REACTIONS (7)
  - Cerebrovascular accident [Fatal]
  - Dementia [Fatal]
  - Failure to thrive [Fatal]
  - Gastrointestinal haemorrhage [Fatal]
  - Pneumonia [Fatal]
  - Cardiac failure [Unknown]
  - Respiratory failure [Unknown]
